FAERS Safety Report 12821005 (Version 2)
Quarter: 2018Q4

REPORT INFORMATION
  Report Type: Report from Study
  Country: ES (occurrence: ES)
  Receive Date: 20161006
  Receipt Date: 20181004
  Transmission Date: 20190204
  Serious: Yes (Other)
  Sender: FDA-Public Use
  Company Number: ES-B.I. PHARMACEUTICALS,INC./RIDGEFIELD-2016-BI-58575BI

PATIENT
  Age: 67 Year
  Sex: Female
  Weight: 87 kg

DRUGS (15)
  1. EXXIV [Suspect]
     Active Substance: ETORICOXIB
     Indication: PSORIATIC ARTHROPATHY
     Dosage: DOSE PER APP/DAILY DOSE: 60
     Route: 065
     Dates: start: 20150519, end: 20160330
  2. STUGERON [Concomitant]
     Active Substance: CINNARIZINE
     Indication: VERTIGO
     Dosage: DOSE PER APP/DAILY DOSE: 150
     Route: 048
  3. CRESTOR [Concomitant]
     Active Substance: ROSUVASTATIN CALCIUM
     Indication: HYPERCHOLESTEROLAEMIA
     Dosage: STRENGTH: 20; DOSE PER APP/DAILY DOSE: 20
     Route: 048
  4. GLIMEPIRIDE. [Suspect]
     Active Substance: GLIMEPIRIDE
     Indication: TYPE 2 DIABETES MELLITUS
     Route: 048
     Dates: start: 201110
  5. NAPROXENO [Suspect]
     Active Substance: NAPROXEN
     Indication: PSORIATIC ARTHROPATHY
     Dosage: DOSE PER APP/DAILY DOSE: 1100
     Route: 048
     Dates: start: 20140512, end: 20150518
  6. OMEPRAZOL [Concomitant]
     Active Substance: OMEPRAZOLE
     Indication: OESOPHAGITIS
     Dosage: DOSE PER APP/DAILY DOSE: 20
     Route: 048
  7. CELECOXIB. [Suspect]
     Active Substance: CELECOXIB
     Indication: PSORIATIC ARTHROPATHY
     Route: 048
     Dates: start: 20160331, end: 20160412
  8. VALDOXAN [Concomitant]
     Active Substance: AGOMELATINE
     Indication: ANXIETY
     Dosage: DOSE PER APP/DAILY DOSE: 25
     Route: 048
  9. NEOBRUFEN/CODEIN [Concomitant]
     Indication: ANXIETY
     Dosage: DOSE PER APP/DAILY DOSE: 0
     Route: 048
     Dates: end: 20120305
  10. CYMBALTA [Concomitant]
     Active Substance: DULOXETINE HYDROCHLORIDE
     Indication: ANXIETY
     Dosage: DOSE PER APP/DAILY DOSE: 60
     Route: 048
     Dates: start: 20120113
  11. IRBESARTAN/HIDROCHLOROTIAZIDE [Concomitant]
     Indication: HYPERTENSION
     Dosage: STRENGTH: 300/25; DOSE PER APP/DAILY DOSE: 300/25
     Route: 048
     Dates: start: 20140513
  12. LYRICA [Concomitant]
     Active Substance: PREGABALIN
     Indication: RESTLESS LEGS SYNDROME
     Dosage: DOSE PER APP/DAILY DOSE: 50
     Route: 048
     Dates: start: 20120907
  13. METFORMIN [Concomitant]
     Active Substance: METFORMIN HYDROCHLORIDE
     Indication: DIABETES MELLITUS
     Dosage: DOSE PER APP/DAILY DOSE: 1700
     Route: 048
  14. CELECOXIB. [Suspect]
     Active Substance: CELECOXIB
     Route: 048
     Dates: start: 20160509
  15. RIVOTRIL [Concomitant]
     Active Substance: CLONAZEPAM
     Indication: RESTLESS LEGS SYNDROME
     Dosage: DOSE PER APP/DAILY DOSE: 2
     Route: 048

REACTIONS (1)
  - Renal impairment [Not Recovered/Not Resolved]

NARRATIVE: CASE EVENT DATE: 20150223
